FAERS Safety Report 19844902 (Version 1)
Quarter: 2021Q3

REPORT INFORMATION
  Report Type: Spontaneous
  Country: CN (occurrence: CN)
  Receive Date: 20210917
  Receipt Date: 20210917
  Transmission Date: 20211014
  Serious: Yes (Other)
  Sender: FDA-Public Use
  Company Number: CN-BRISTOL-MYERS SQUIBB COMPANY-BMS-2021-089623

PATIENT
  Age: 52 Year
  Sex: Male
  Weight: 61 kg

DRUGS (1)
  1. BARACLUDE [Suspect]
     Active Substance: ENTECAVIR
     Indication: CHRONIC HEPATITIS B
     Dosage: 0.5 MILLIGRAM, QD, DOSES RECEIVED: 1
     Route: 048
     Dates: start: 20201231, end: 20210902

REACTIONS (2)
  - Drug-induced liver injury [Unknown]
  - Total bile acids increased [Unknown]

NARRATIVE: CASE EVENT DATE: 20210902
